FAERS Safety Report 4602840-2 (Version None)
Quarter: 2005Q1

REPORT INFORMATION
  Report Type: 
  Country: None (occurrence: None)
  Receive Date: 20050307
  Receipt Date: 20050224
  Transmission Date: 20050727
  Serious: Yes (Disabling)
  Sender: FDA-Public Use
  Company Number: 2004AP05719

PATIENT
  Age: 72 Year
  Sex: Male

DRUGS (18)
  1. IRESSA [Suspect]
     Indication: LUNG ADENOCARCINOMA
     Dosage: 250 MG DAILY PO
     Route: 048
  2. IRESSA [Suspect]
     Indication: LUNG ADENOCARCINOMA
     Dosage: 250 MG DAILY PO
     Route: 048
  3. RADIOTHERAPY [Suspect]
  4. MOBIC [Concomitant]
  5. CYTOTEC [Concomitant]
  6. NAUZELIN [Concomitant]
  7. MAGNESIUM OXIDE [Concomitant]
  8. FLUITRAN [Concomitant]
  9. BONALON [Concomitant]
  10. MS CONTIN [Concomitant]
  11. ARBOPLATIN [Concomitant]
  12. CISPLATIN [Concomitant]
  13. PACITAXEL [Concomitant]
  14. IRINOTECAN HCL [Concomitant]
  15. DECETAXEL [Concomitant]
  16. GEMCITABINE [Concomitant]
  17. VINORELBINE TARTRATE [Concomitant]
  18. AMRUBICIN [Concomitant]

REACTIONS (2)
  - ACUTE PROMYELOCYTIC LEUKAEMIA [None]
  - MALIGNANT NEOPLASM PROGRESSION [None]
